FAERS Safety Report 17240406 (Version 1)
Quarter: 2019Q4

REPORT INFORMATION
  Report Type: Spontaneous
  Country: US (occurrence: US)
  Receive Date: 20191211
  Receipt Date: 20191211
  Transmission Date: 20200122
  Serious: Yes (Hospitalization)
  Sender: FDA-Public Use
  Company Number: None

PATIENT
  Age: 1 Year
  Sex: Female

DRUGS (2)
  1. SYNAGIS [Concomitant]
     Active Substance: PALIVIZUMAB
  2. PULMOZYME [Suspect]
     Active Substance: DORNASE ALFA
     Indication: DYSPHAGIA
     Dosage: ?          OTHER ROUTE:INHALATION?
     Route: 055
     Dates: start: 20190524

REACTIONS (2)
  - Cystic fibrosis [None]
  - Pneumonia [None]

NARRATIVE: CASE EVENT DATE: 20191110
